FAERS Safety Report 20581388 (Version 1)
Quarter: 2022Q1

REPORT INFORMATION
  Report Type: Spontaneous
  Country: DK (occurrence: DK)
  Receive Date: 20220311
  Receipt Date: 20220311
  Transmission Date: 20220423
  Serious: Yes (Death, Life-Threatening, Other)
  Sender: FDA-Public Use
  Company Number: DK-AMGEN-DNKSP2022041427

PATIENT

DRUGS (2)
  1. PANITUMUMAB [Suspect]
     Active Substance: PANITUMUMAB
     Indication: Colorectal cancer metastatic
     Dosage: 9 MILLIGRAM/KILOGRAM, Q3WK
     Route: 065
  2. CAPECITABINE [Suspect]
     Active Substance: CAPECITABINE
     Indication: Colorectal cancer metastatic
     Dosage: 850 MILLIGRAM/SQ. METER (TWICE DAILY ON DAY 1-14, Q3W)
     Route: 065

REACTIONS (2)
  - Toxicity to various agents [Fatal]
  - Adverse event [Unknown]
